FAERS Safety Report 22235632 (Version 1)
Quarter: 2023Q2

REPORT INFORMATION
  Report Type: Spontaneous
  Country: KR (occurrence: None)
  Receive Date: 20230420
  Receipt Date: 20230420
  Transmission Date: 20230722
  Serious: Yes (Other)
  Sender: FDA-Public Use
  Company Number: 2023A085824

PATIENT
  Sex: Female

DRUGS (1)
  1. CRESTOR [Suspect]
     Active Substance: ROSUVASTATIN CALCIUM
     Indication: Hyperlipidaemia
     Route: 048
     Dates: start: 20230328

REACTIONS (3)
  - Rash [Unknown]
  - Stevens-Johnson syndrome [Unknown]
  - Malaise [Unknown]

NARRATIVE: CASE EVENT DATE: 20230410
